FAERS Safety Report 16241093 (Version 1)
Quarter: 2019Q2

REPORT INFORMATION
  Report Type: Spontaneous
  Country: US (occurrence: US)
  Receive Date: 20190425
  Receipt Date: 20190425
  Transmission Date: 20190711
  Serious: Yes (Hospitalization)
  Sender: FDA-Public Use
  Company Number: PHHY2019US092036

PATIENT
  Age: 55 Year
  Sex: Male

DRUGS (5)
  1. RITONAVIR. [Interacting]
     Active Substance: RITONAVIR
     Indication: HIV INFECTION
     Route: 065
  2. RALTEGRAVIR. [Concomitant]
     Active Substance: RALTEGRAVIR
     Indication: HIV INFECTION
     Route: 065
  3. BUDESONIDE. [Suspect]
     Active Substance: BUDESONIDE
     Indication: CHRONIC OBSTRUCTIVE PULMONARY DISEASE
     Route: 055
  4. DARUNAVIR [Concomitant]
     Active Substance: DARUNAVIR
     Indication: HIV INFECTION
     Route: 065
  5. MARAVIROC [Concomitant]
     Active Substance: MARAVIROC
     Indication: HIV INFECTION
     Route: 065

REACTIONS (10)
  - Cellulitis [Unknown]
  - Swelling face [Recovered/Resolved]
  - Sinusitis [Unknown]
  - Obesity [Recovering/Resolving]
  - Erythema [Unknown]
  - Skin striae [Unknown]
  - Oral candidiasis [Unknown]
  - Sinus pain [Unknown]
  - Cushing^s syndrome [Recovering/Resolving]
  - Drug interaction [Unknown]
